FAERS Safety Report 21163443 (Version 3)
Quarter: 2025Q3

REPORT INFORMATION
  Report Type: Spontaneous
  Country: EU (occurrence: EU)
  Receive Date: 20220802
  Receipt Date: 20250917
  Transmission Date: 20251020
  Serious: Yes (Other)
  Sender: ROCHE
  Company Number: EU-MYLANLABS-2022M1079066

PATIENT
  Age: 64 Year
  Sex: Male

DRUGS (14)
  1. BEVACIZUMAB [Suspect]
     Active Substance: BEVACIZUMAB
     Indication: Rectal cancer metastatic
     Route: 065
     Dates: start: 201909, end: 202012
  2. BEVACIZUMAB [Suspect]
     Active Substance: BEVACIZUMAB
     Route: 065
  3. CAPECITABINE [Suspect]
     Active Substance: CAPECITABINE
     Indication: Rectal cancer metastatic
     Route: 065
     Dates: start: 2018
  4. FLUOROURACIL [Suspect]
     Active Substance: FLUOROURACIL
     Indication: Rectal cancer metastatic
     Route: 065
     Dates: start: 201808, end: 2018
  5. FLUOROURACIL [Suspect]
     Active Substance: FLUOROURACIL
     Route: 065
     Dates: start: 2018, end: 201812
  6. FLUOROURACIL [Suspect]
     Active Substance: FLUOROURACIL
     Route: 065
     Dates: start: 201909
  7. LEUCOVORIN CALCIUM [Suspect]
     Active Substance: LEUCOVORIN CALCIUM
     Indication: Rectal cancer metastatic
     Route: 065
     Dates: start: 201808, end: 2018
  8. LEUCOVORIN CALCIUM [Suspect]
     Active Substance: LEUCOVORIN CALCIUM
     Route: 065
     Dates: start: 2018, end: 201812
  9. LEUCOVORIN CALCIUM [Suspect]
     Active Substance: LEUCOVORIN CALCIUM
     Route: 065
     Dates: start: 201909
  10. IRINOTECAN [Suspect]
     Active Substance: IRINOTECAN
     Indication: Rectal cancer metastatic
     Route: 065
     Dates: start: 201909
  11. OXALIPLATIN [Suspect]
     Active Substance: OXALIPLATIN
     Indication: Rectal cancer metastatic
     Route: 065
     Dates: start: 201808, end: 2018
  12. OXALIPLATIN [Suspect]
     Active Substance: OXALIPLATIN
     Route: 065
     Dates: start: 2018, end: 201812
  13. AMLODIPINE BESYLATE\PERINDOPRIL ARGININE [Concomitant]
     Active Substance: AMLODIPINE BESYLATE\PERINDOPRIL ARGININE
  14. TIPIRACIL HYDROCHLORIDE\TRIFLURIDINE [Concomitant]
     Active Substance: TIPIRACIL HYDROCHLORIDE\TRIFLURIDINE

REACTIONS (9)
  - Diarrhoea [Not Recovered/Not Resolved]
  - Disease progression [Unknown]
  - Palmar-plantar erythrodysaesthesia syndrome [Unknown]
  - Rectal tenesmus [Unknown]
  - Dysuria [Unknown]
  - Thrombocytopenia [Unknown]
  - Accelerated hypertension [Unknown]
  - Proteinuria [Unknown]
  - Drug intolerance [Unknown]
